FAERS Safety Report 4760401-9 (Version None)
Quarter: 2005Q3

REPORT INFORMATION
  Report Type: 
  Country: None (occurrence: None)
  Receive Date: 20050902
  Receipt Date: 20050831
  Transmission Date: 20060218
  Serious: Yes (Other)
  Sender: FDA-Public Use
  Company Number: DE-GLAXOSMITHKLINE-D0047408A

PATIENT
  Age: 54 Year
  Sex: Male

DRUGS (8)
  1. ELMENDOS [Suspect]
     Indication: BIPOLAR DISORDER
     Dosage: 100MG TWICE PER DAY
     Route: 048
     Dates: start: 20040909
  2. JATROSOM [Concomitant]
     Indication: DEPRESSION
     Dosage: 10MG PER DAY
     Route: 048
     Dates: start: 20030131, end: 20050203
  3. OMEPRAZOLE [Concomitant]
     Dosage: 20MG TWICE PER DAY
     Route: 065
  4. CREON [Concomitant]
     Route: 065
  5. ISOPTIN [Concomitant]
     Dosage: 80MG THREE TIMES PER DAY
     Route: 065
  6. OXYGESIC [Concomitant]
     Dosage: 40MG THREE TIMES PER DAY
     Route: 065
  7. MIRTAZAPINE [Concomitant]
     Dosage: 30MG PER DAY
     Route: 065
  8. HOMEOPATHIC MEDICATION [Concomitant]
     Route: 065

REACTIONS (1)
  - PNEUMONIA [None]
